FAERS Safety Report 10190413 (Version 1)
Quarter: 2014Q2

REPORT INFORMATION
  Report Type: Spontaneous
  Country: GB (occurrence: GB)
  Receive Date: 20140522
  Receipt Date: 20140522
  Transmission Date: 20141212
  Serious: Yes (Hospitalization, Other)
  Sender: FDA-Public Use
  Company Number: GB-WATSON-2014-10489

PATIENT
  Age: 29 Year
  Sex: Female

DRUGS (4)
  1. FENTANYL [Suspect]
     Indication: PRODUCT USED FOR UNKNOWN INDICATION
     Dosage: 50 MICROGRAMS, UNKNOWN
     Route: 065
  2. DIAMORPHINE [Interacting]
     Indication: PRODUCT USED FOR UNKNOWN INDICATION
     Dosage: 500 MICROGRAMS, UNKNOWN; DOSAGE FORM: UNSPECIFIED
     Route: 065
  3. PALEXIA [Suspect]
     Indication: PRODUCT USED FOR UNKNOWN INDICATION
     Dosage: UNK
     Route: 048
  4. TRAMADOL HYDROCHLORIDE [Concomitant]
     Indication: PRODUCT USED FOR UNKNOWN INDICATION
     Dosage: UNK; DOSAGE FORM: UNSPECIFIED
     Route: 065

REACTIONS (3)
  - Respiratory arrest [Recovered/Resolved with Sequelae]
  - Potentiating drug interaction [Unknown]
  - Exposure during pregnancy [Recovered/Resolved]
